FAERS Safety Report 13266526 (Version 1)
Quarter: 2017Q1

REPORT INFORMATION
  Report Type: Spontaneous
  Country: FR (occurrence: FR)
  Receive Date: 20170223
  Receipt Date: 20170223
  Transmission Date: 20170428
  Serious: Yes (Death, Other)
  Sender: FDA-Public Use
  Company Number: FR-ENDO PHARMACEUTICALS INC-2017-000872

PATIENT
  Age: 62 Year
  Sex: Male

DRUGS (2)
  1. GLIMEPIRIDE TABLETS [Suspect]
     Active Substance: GLIMEPIRIDE
     Indication: TYPE 2 DIABETES MELLITUS
     Dosage: UNK UNK, UNKNOWN
     Route: 065
  2. COTRIMOXAZOLE [Suspect]
     Active Substance: SULFAMETHOXAZOLE\TRIMETHOPRIM
     Indication: STAPHYLOCOCCAL INFECTION
     Dosage: UNK UNK, UNKNOWN
     Route: 065
     Dates: start: 201508

REACTIONS (5)
  - Gait disturbance [Unknown]
  - Hypoglycaemic coma [Fatal]
  - Drug interaction [Unknown]
  - Renal failure [Unknown]
  - Malaise [Unknown]
